FAERS Safety Report 16348099 (Version 1)
Quarter: 2019Q2

REPORT INFORMATION
  Report Type: Spontaneous
  Country: US (occurrence: US)
  Receive Date: 20190417
  Receipt Date: 20190417
  Transmission Date: 20190711
  Serious: No
  Sender: FDA-Public Use
  Company Number: None

PATIENT
  Sex: Female

DRUGS (13)
  1. IBUPROFEN. [Concomitant]
     Active Substance: IBUPROFEN
  2. VIT D [Concomitant]
     Active Substance: VITAMIN D NOS
  3. OCALIVA [Suspect]
     Active Substance: OBETICHOLIC ACID
     Indication: PRIMARY BILIARY CHOLANGITIS
     Route: 048
     Dates: start: 20190322
  4. NORCO [Concomitant]
     Active Substance: ACETAMINOPHEN\HYDROCODONE BITARTRATE
  5. URSODIOL. [Concomitant]
     Active Substance: URSODIOL
  6. ALBUTEROL. [Concomitant]
     Active Substance: ALBUTEROL
  7. IMITREX [Concomitant]
     Active Substance: SUMATRIPTAN SUCCINATE
  8. MULTI VIT [Concomitant]
     Active Substance: VITAMINS
  9. LAMOTRIGINE. [Concomitant]
     Active Substance: LAMOTRIGINE
  10. ONDANSETRON [Concomitant]
     Active Substance: ONDANSETRON
  11. PANTOPRAZOLE [Concomitant]
     Active Substance: PANTOPRAZOLE
  12. CLONAZEPAM. [Concomitant]
     Active Substance: CLONAZEPAM
  13. WELLBUTRIN [Concomitant]
     Active Substance: BUPROPION HYDROCHLORIDE

REACTIONS (2)
  - Dizziness [None]
  - Dry mouth [None]
